FAERS Safety Report 5236002-5 (Version None)
Quarter: 2007Q1

REPORT INFORMATION
  Report Type: 
  Country: None (occurrence: None)
  Receive Date: 20061208
  Receipt Date: 20060403
  Transmission Date: 20070707
  Serious: Yes (Other)
  Sender: FDA-Public Use
  Company Number: 2006UW05786

PATIENT
  Age: 63 Year
  Sex: Female
  Weight: 101.15 kg

DRUGS (4)
  1. CRESTOR [Suspect]
     Indication: BLOOD CHOLESTEROL INCREASED
     Dosage: 10 MG QD PO
     Route: 048
     Dates: start: 20050101
  2. ZETIA [Concomitant]
  3. TRICOR [Concomitant]
  4. MEDICATION FOR CROHN'S DISEASE [Concomitant]

REACTIONS (3)
  - BLOOD CREATININE INCREASED [None]
  - DRUG INEFFECTIVE [None]
  - MUSCLE SPASMS [None]
